FAERS Safety Report 10664168 (Version 1)
Quarter: 2014Q4

REPORT INFORMATION
  Report Type: Spontaneous
  Country: IN (occurrence: None)
  Receive Date: 20141217
  Receipt Date: 20141217
  Transmission Date: 20150529
  Serious: Yes (Other)
  Sender: FDA-Public Use
  Company Number: INT_00545_2014

PATIENT

DRUGS (4)
  1. CISPLATIN (CISPLATIN) (HQ SPECIALTY) [Suspect]
     Active Substance: CISPLATIN
     Indication: SQUAMOUS CELL CARCINOMA OF HEAD AND NECK
  2. DOCETAXEL (DOCETAXEL) [Suspect]
     Active Substance: DOCETAXEL
     Indication: SQUAMOUS CELL CARCINOMA OF HEAD AND NECK
  3. GEFITINIB [Suspect]
     Active Substance: GEFITINIB
     Indication: SQUAMOUS CELL CARCINOMA OF HEAD AND NECK
  4. RADIATION THERAPY [Suspect]
     Active Substance: RADIATION THERAPY
     Indication: SQUAMOUS CELL CARCINOMA OF HEAD AND NECK
     Dosage: PLANNED TO A DOSE OF 66 GY/33 FRACTIONS

REACTIONS (7)
  - Haematotoxicity [None]
  - Nausea [None]
  - Mucosal inflammation [None]
  - Thrombocytopenia [None]
  - Diarrhoea [None]
  - Vomiting [None]
  - Febrile neutropenia [None]
